FAERS Safety Report 17767317 (Version 1)
Quarter: 2020Q2

REPORT INFORMATION
  Report Type: Spontaneous
  Country: US (occurrence: US)
  Receive Date: 20200511
  Receipt Date: 20200511
  Transmission Date: 20200714
  Serious: No
  Sender: FDA-Public Use
  Company Number: US-FDC LIMITED-2083675

PATIENT
  Age: 64 Year
  Sex: Female
  Weight: 43.64 kg

DRUGS (1)
  1. CIPROFLOXACIN. [Suspect]
     Active Substance: CIPROFLOXACIN
     Indication: BLEPHAROPLASTY
     Route: 047
     Dates: start: 20200303, end: 20200303

REACTIONS (2)
  - Eye pain [Recovered/Resolved]
  - Product administration error [Unknown]

NARRATIVE: CASE EVENT DATE: 20200303
